FAERS Safety Report 7660361-7 (Version None)
Quarter: 2011Q3

REPORT INFORMATION
  Report Type: 
  Country: None (occurrence: None)
  Receive Date: 20110805
  Receipt Date: 20110727
  Transmission Date: 20111222
  Serious: Yes (Other)
  Sender: FDA-Public Use
  Company Number: US-US-EMD SERONO, INC.-7073937

PATIENT
  Sex: Female
  Weight: 73 kg

DRUGS (2)
  1. PROVIGIL [Concomitant]
  2. REBIF [Suspect]
     Indication: PRODUCT USED FOR UNKNOWN INDICATION
     Route: 058
     Dates: start: 20070430

REACTIONS (2)
  - INSOMNIA [None]
  - LUNG NEOPLASM [None]
